FAERS Safety Report 24235401 (Version 1)
Quarter: 2024Q3

REPORT INFORMATION
  Report Type: Report from Study
  Country: US (occurrence: US)
  Receive Date: 20240821
  Receipt Date: 20240821
  Transmission Date: 20241017
  Serious: Yes (Other)
  Sender: ABBVIE
  Company Number: US-ABBVIE-5507883

PATIENT
  Sex: Male

DRUGS (2)
  1. SKYRIZI [Suspect]
     Active Substance: RISANKIZUMAB-RZAA
     Indication: Crohn^s disease
     Route: 058
     Dates: start: 20230309
  2. SKYRIZI [Suspect]
     Active Substance: RISANKIZUMAB-RZAA
     Dosage: LAST ADMIN DATE: 2023
     Route: 058
     Dates: start: 20230112

REACTIONS (12)
  - Umbilical hernia [Recovering/Resolving]
  - Abdominal pain [Recovered/Resolved]
  - Abdominal discomfort [Recovered/Resolved]
  - Therapeutic response shortened [Unknown]
  - Pain in extremity [Unknown]
  - Skin lesion [Recovering/Resolving]
  - Flatulence [Unknown]
  - Abdominal distension [Unknown]
  - Wound secretion [Unknown]
  - Blister [Unknown]
  - Calcinosis [Not Recovered/Not Resolved]
  - Dermatitis contact [Unknown]

NARRATIVE: CASE EVENT DATE: 20230101
